FAERS Safety Report 23795435 (Version 2)
Quarter: 2024Q2

REPORT INFORMATION
  Report Type: Spontaneous
  Country: JP (occurrence: JP)
  Receive Date: 20240429
  Receipt Date: 20240618
  Transmission Date: 20240716
  Serious: Yes (Life-Threatening, Other)
  Sender: FDA-Public Use
  Company Number: JP-PFIZER INC-PV202400053600

PATIENT
  Age: 88 Year
  Sex: Male
  Weight: 58.2 kg

DRUGS (15)
  1. PAXLOVID [Interacting]
     Active Substance: NIRMATRELVIR\RITONAVIR
     Indication: COVID-19 treatment
     Dosage: [NIRMATRELVIR 300 MG]/[RITONAVIR 100 MG]; 2X/DAY
     Route: 048
     Dates: start: 20240314, end: 20240315
  2. BETHANECHOL CHLORIDE [Interacting]
     Active Substance: BETHANECHOL CHLORIDE
     Indication: Neurogenic bladder
     Dosage: POWDER, 0.3 G, 2X/DAY
     Route: 048
     Dates: end: 20240315
  3. SIMVASTATIN [Concomitant]
     Active Substance: SIMVASTATIN
     Dosage: 5 MG, 1 TABLET
  4. BENIDIPINE [Concomitant]
     Active Substance: BENIDIPINE
     Dosage: 4 MG, 1 TABLET
  5. CANDESARTAN [Concomitant]
     Active Substance: CANDESARTAN
     Dosage: 8 MG AND 4 MG
     Route: 048
  6. BISOPROLOL FUMARATE [Concomitant]
     Active Substance: BISOPROLOL FUMARATE
     Dosage: 2.5 MG, 1 TABLET
  7. EDOXABAN TOSYLATE [Concomitant]
     Active Substance: EDOXABAN TOSYLATE
     Dosage: 60MG, 0.5 TABLET
  8. TAGAMET [Concomitant]
     Active Substance: CIMETIDINE
     Dosage: 200 MG, 1 TABLET
  9. HERBALS [Concomitant]
     Active Substance: HERBALS
     Dosage: 2.5G, 6 PACKS DAILY IN TOTAL, DIVIDED 3 TIMES/DAY, AFTER EACH MEAL
     Dates: start: 20240223
  10. MAGNESIUM OXIDE [Concomitant]
     Active Substance: MAGNESIUM OXIDE
     Dosage: 330 MG, 3X/DAY, AFTER EACH MEAL
     Dates: start: 20240223
  11. MIYA-BM [Concomitant]
     Active Substance: CLOSTRIDIUM BUTYRICUM SPORES STRAIN M-55
     Dosage: 1 DF, 3X/DAY, AFTER EACH MEAL
     Dates: start: 20240223
  12. KEFLEX [Concomitant]
     Active Substance: CEPHALEXIN
     Dosage: 250MG, 6 CAPSULES DAILY IN TOTAL, DIVIDED 3 TIMES/DAY, AFTER EACH MEAL
     Dates: start: 20240312
  13. QUETIAPINE [Concomitant]
     Active Substance: QUETIAPINE
     Dosage: 100 MG 1 TABLET, 1X/DAY, AFTER DINNER
     Dates: start: 20240304
  14. QUETIAPINE [Concomitant]
     Active Substance: QUETIAPINE
     Dosage: 25MG, 2 TABLETS, AS NEEDED, AT THE TIME OF UNREST
  15. DAYVIGO [Concomitant]
     Active Substance: LEMBOREXANT
     Dosage: 5MG, 2 TABLETS, 1X/DAY, AFTER DINNER
     Dates: start: 20240304

REACTIONS (3)
  - Cholinergic syndrome [Recovered/Resolved]
  - Renal impairment [Recovered/Resolved]
  - Drug interaction [Unknown]

NARRATIVE: CASE EVENT DATE: 20240315
